FAERS Safety Report 4749383-3 (Version None)
Quarter: 2005Q3

REPORT INFORMATION
  Report Type: 
  Country: None (occurrence: None)
  Receive Date: 20050819
  Receipt Date: 20050126
  Transmission Date: 20060218
  Serious: Yes (Hospitalization, Disabling)
  Sender: FDA-Public Use
  Company Number: US-MERCK-0501USA04295

PATIENT
  Age: 38 Year
  Sex: Male
  Weight: 100 kg

DRUGS (10)
  1. VIOXX [Suspect]
     Indication: ARTHRALGIA
     Route: 048
     Dates: start: 20000809, end: 20040901
  2. VIOXX [Suspect]
     Route: 048
     Dates: start: 20000809, end: 20040901
  3. CLARITIN-D [Concomitant]
     Indication: HYPERSENSITIVITY
     Route: 065
  4. FLOVENT [Concomitant]
     Route: 065
  5. ADVAIR DISKUS 100/50 [Concomitant]
     Indication: ASTHMA
     Route: 065
  6. ALLEGRA-D [Concomitant]
     Route: 065
  7. SINGULAIR [Concomitant]
     Indication: ASTHMA
     Route: 048
  8. ALBUTEROL [Concomitant]
     Indication: ASTHMA
     Route: 065
  9. ALBUTEROL [Concomitant]
     Route: 065
  10. MOTRIN [Concomitant]
     Route: 065

REACTIONS (5)
  - CEREBROVASCULAR ACCIDENT [None]
  - DEPRESSION [None]
  - HYPERTENSION [None]
  - SEXUAL DYSFUNCTION [None]
  - TEMPERATURE INTOLERANCE [None]
